FAERS Safety Report 21900008 (Version 2)
Quarter: 2024Q2

REPORT INFORMATION
  Report Type: Report from Study
  Country: FR (occurrence: FR)
  Receive Date: 20230123
  Receipt Date: 20240626
  Transmission Date: 20240716
  Serious: Yes (Other)
  Sender: FDA-Public Use
  Company Number: FR-TAKEDA-2023TUS007805

PATIENT
  Age: 75 Year
  Sex: Female

DRUGS (10)
  1. TEDUGLUTIDE [Suspect]
     Active Substance: TEDUGLUTIDE
     Indication: Short-bowel syndrome
     Dosage: 3 MILLIGRAM, QD
     Route: 042
     Dates: start: 20210615, end: 20220303
  2. TEDUGLUTIDE [Suspect]
     Active Substance: TEDUGLUTIDE
     Indication: Short-bowel syndrome
     Dosage: 3 MILLIGRAM, QD
     Route: 042
     Dates: start: 20210615, end: 20220303
  3. TEDUGLUTIDE [Suspect]
     Active Substance: TEDUGLUTIDE
     Indication: Short-bowel syndrome
     Dosage: 3 MILLIGRAM, QD
     Route: 042
     Dates: start: 20210615, end: 20220303
  4. TEDUGLUTIDE [Suspect]
     Active Substance: TEDUGLUTIDE
     Indication: Short-bowel syndrome
     Dosage: 3 MILLIGRAM, QD
     Route: 042
     Dates: start: 20210615, end: 20220303
  5. CEFOTAXIME [Concomitant]
     Active Substance: CEFOTAXIME SODIUM
     Indication: Pyelonephritis acute
     Dosage: UNK
     Route: 065
     Dates: start: 20210910, end: 202109
  6. CEFOTAXIME [Concomitant]
     Active Substance: CEFOTAXIME SODIUM
     Indication: Urinary tract infection
     Dosage: UNK
     Route: 065
     Dates: start: 20210909, end: 20210913
  7. AMIKACIN [Concomitant]
     Active Substance: AMIKACIN
     Indication: Pyelonephritis acute
     Dosage: UNK
     Route: 042
     Dates: start: 20210910, end: 202109
  8. CALCIUM [Concomitant]
     Active Substance: CALCIUM
     Indication: Prophylaxis
     Dosage: UNK
     Route: 048
     Dates: start: 20220415
  9. URSODIOL [Concomitant]
     Active Substance: URSODIOL
     Indication: Short-bowel syndrome
     Dosage: 500 MILLIGRAM, BID
     Route: 048
     Dates: start: 20220415
  10. VITAMIN D [Concomitant]
     Active Substance: VITAMIN D NOS
     Indication: Supplementation therapy
     Dosage: 200000.0 INTERNATIONAL UNIT
     Route: 048
     Dates: start: 20220415

REACTIONS (2)
  - Pyelonephritis acute [Recovered/Resolved]
  - Urinary tract infection [Recovered/Resolved]

NARRATIVE: CASE EVENT DATE: 20210901
